FAERS Safety Report 9078409 (Version 1)
Quarter: 2013Q1

REPORT INFORMATION
  Report Type: Report from Study
  Country: US (occurrence: US)
  Receive Date: 20130130
  Receipt Date: 20130130
  Transmission Date: 20140127
  Serious: No
  Sender: FDA-Public Use
  Company Number: US-ABBOTT-12P-163-0977401-00

PATIENT
  Sex: Female
  Weight: 61.29 kg

DRUGS (3)
  1. HUMIRA [Suspect]
     Indication: PSORIASIS
     Dosage: SKIPPED A DOSE FOR A WEEK
  2. METHOTREXATE [Concomitant]
     Indication: PSORIASIS
  3. APRI [Concomitant]
     Indication: CONTRACEPTION

REACTIONS (4)
  - Cough [Recovering/Resolving]
  - Respiratory tract congestion [Recovering/Resolving]
  - Nasopharyngitis [Recovering/Resolving]
  - Drug dose omission [Not Recovered/Not Resolved]
